FAERS Safety Report 4312582-9 (Version None)
Quarter: 2004Q1

REPORT INFORMATION
  Report Type: 
  Country: None (occurrence: None)
  Receive Date: 20040303
  Receipt Date: 20040203
  Transmission Date: 20041129
  Serious: Yes (Hospitalization, Other)
  Sender: FDA-Public Use
  Company Number: RB-475-2004

PATIENT
  Age: 45 Year
  Sex: Male
  Weight: 81.6475 kg

DRUGS (1)
  1. SUBOXONE [Suspect]
     Indication: DRUG DEPENDENCE
     Dosage: 12 MG BID SL
     Route: 060

REACTIONS (2)
  - ABDOMINAL PAIN UPPER [None]
  - HAEMATEMESIS [None]
